FAERS Safety Report 19057367 (Version 1)
Quarter: 2021Q1

REPORT INFORMATION
  Report Type: Spontaneous
  Country: US (occurrence: US)
  Receive Date: 20210325
  Receipt Date: 20210325
  Transmission Date: 20210420
  Serious: No
  Sender: FDA-Public Use
  Company Number: US-EISAI MEDICAL RESEARCH-EC-2021-089656

PATIENT
  Age: 28 Year
  Sex: Female

DRUGS (3)
  1. DAYVIGO [Suspect]
     Active Substance: LEMBOREXANT
     Indication: INSOMNIA
     Route: 048
     Dates: start: 20210219, end: 20210219
  2. QUETIAPINE. [Concomitant]
     Active Substance: QUETIAPINE
     Indication: BIPOLAR DISORDER
     Dosage: 3 DOSAGE FORMS DAILY (FREQUENCY UNKNOWN)
     Route: 048
  3. ZOLPIDEM [Interacting]
     Active Substance: ZOLPIDEM TARTRATE
     Indication: INSOMNIA
     Route: 048

REACTIONS (2)
  - Sleep paralysis [Recovered/Resolved]
  - Drug interaction [Recovered/Resolved]

NARRATIVE: CASE EVENT DATE: 20210220
